FAERS Safety Report 18045956 (Version 1)
Quarter: 2020Q3

REPORT INFORMATION
  Report Type: Spontaneous
  Country: US (occurrence: US)
  Receive Date: 20200720
  Receipt Date: 20200720
  Transmission Date: 20201103
  Serious: Yes (Hospitalization, Other)
  Sender: FDA-Public Use
  Company Number: US-PURDUE-USA-2020-0158041

PATIENT
  Age: 25 Year
  Sex: Female

DRUGS (1)
  1. BUPRENORPHINE TRANSDERMAL PATCH (SIMILAR TO NDA 21?306) [Suspect]
     Active Substance: BUPRENORPHINE
     Indication: PRODUCT USED FOR UNKNOWN INDICATION
     Dosage: UNK
     Route: 062

REACTIONS (18)
  - Overdose [Unknown]
  - Renal failure [Unknown]
  - Pain [Not Recovered/Not Resolved]
  - Brain injury [Not Recovered/Not Resolved]
  - Oxygen saturation decreased [Unknown]
  - Amnesia [Not Recovered/Not Resolved]
  - Thyroid disorder [Not Recovered/Not Resolved]
  - Abdominal distension [Unknown]
  - Drug abuse [Unknown]
  - Unresponsive to stimuli [Unknown]
  - Cardio-respiratory arrest [Unknown]
  - Pyrexia [Unknown]
  - Hypertension [Not Recovered/Not Resolved]
  - Blood creatine phosphokinase increased [Unknown]
  - Eye movement disorder [Unknown]
  - Panic disorder [Not Recovered/Not Resolved]
  - Troponin increased [Unknown]
  - White blood cell count increased [Unknown]

NARRATIVE: CASE EVENT DATE: 200904
